FAERS Safety Report 11414826 (Version 1)
Quarter: 2015Q3

REPORT INFORMATION
  Report Type: Spontaneous
  Country: US (occurrence: None)
  Receive Date: 20150821
  Receipt Date: 20150821
  Transmission Date: 20151125
  Serious: Yes (Other)
  Sender: FDA-Public Use
  Company Number: HT-2015-267-0012 PR14709

PATIENT
  Age: 15 Year
  Sex: Male
  Weight: 68 kg

DRUGS (1)
  1. CLOBETASOL PROPIONATE CREAM USP 0.05% [Suspect]
     Active Substance: CLOBETASOL PROPIONATE

REACTIONS (3)
  - Cushing^s syndrome [None]
  - Hypogonadism [None]
  - Osteoporosis [None]
